FAERS Safety Report 9205836 (Version 1)
Quarter: 2013Q1

REPORT INFORMATION
  Report Type: Spontaneous
  Country: US (occurrence: None)
  Receive Date: 20120731
  Receipt Date: 20120731
  Transmission Date: 20140127
  Serious: Yes (Other)
  Sender: FDA-Public Use
  Company Number: US201206001808

PATIENT
  Age: 51 Year
  Sex: Male

DRUGS (8)
  1. BYDUREON [Suspect]
     Indication: TYPE 2 DIABETES MELLITUS
     Route: 058
     Dates: start: 20120527
  2. ACTOS /USA/(PIOGLITAZONE HYDROCHLORIDE) [Concomitant]
  3. GLIPIZIDE (GLIPIZIDE) [Concomitant]
  4. FUROSEMIDE (FUROSEMIDE) [Concomitant]
  5. FELODIPINE (FELODIPINE) [Concomitant]
  6. ENALAPRIL [Concomitant]
  7. CRANBERRY (VACCINIUM MACROCARPON) [Concomitant]
  8. VITAMINS [Concomitant]

REACTIONS (3)
  - Renal impairment [None]
  - Nausea [None]
  - Vomiting [None]
